FAERS Safety Report 11301839 (Version 1)
Quarter: 2015Q3

REPORT INFORMATION
  Report Type: Spontaneous
  Country: US (occurrence: US)
  Receive Date: 20150722
  Receipt Date: 20150722
  Transmission Date: 20151125
  Serious: No
  Sender: FDA-Public Use
  Company Number: US-ELI_LILLY_AND_COMPANY-US200901001241

PATIENT
  Sex: Male

DRUGS (2)
  1. HUMATROPE [Suspect]
     Active Substance: SOMATROPIN
     Dosage: 0.4 MG, DAILY (1/D)
     Dates: start: 200810
  2. HUMATROPE [Suspect]
     Active Substance: SOMATROPIN
     Indication: GROWTH HORMONE DEFICIENCY
     Dosage: 0.3 MG, UNK
     Dates: start: 2008

REACTIONS (6)
  - Musculoskeletal stiffness [Unknown]
  - Fatigue [Unknown]
  - Myalgia [Unknown]
  - Pain in extremity [Unknown]
  - Sleep disorder [Unknown]
  - Arthralgia [Unknown]

NARRATIVE: CASE EVENT DATE: 2008
